FAERS Safety Report 4749935-0 (Version None)
Quarter: 2005Q3

REPORT INFORMATION
  Report Type: 
  Country: None (occurrence: None)
  Receive Date: 20050822
  Receipt Date: 20050810
  Transmission Date: 20060218
  Serious: Yes (Disabling)
  Sender: FDA-Public Use
  Company Number: GBWYE845720JUL05

PATIENT
  Age: 21 Year
  Sex: Female

DRUGS (7)
  1. EFFEXOR XR [Suspect]
     Indication: ANXIETY
     Dosage: 225 MG 1X PER 1 DAY ORAL; 225 MG 1X PER 1 DAY ORAL
     Route: 048
     Dates: end: 20050705
  2. EFFEXOR XR [Suspect]
     Indication: DEPRESSION
     Dosage: 225 MG 1X PER 1 DAY ORAL; 225 MG 1X PER 1 DAY ORAL
     Route: 048
     Dates: end: 20050705
  3. EFFEXOR XR [Suspect]
     Indication: ANXIETY
     Dosage: 225 MG 1X PER 1 DAY ORAL; 225 MG 1X PER 1 DAY ORAL
     Route: 048
     Dates: start: 20050706, end: 20050731
  4. EFFEXOR XR [Suspect]
     Indication: DEPRESSION
     Dosage: 225 MG 1X PER 1 DAY ORAL; 225 MG 1X PER 1 DAY ORAL
     Route: 048
     Dates: start: 20050706, end: 20050731
  5. EFFEXOR XR [Suspect]
     Indication: ANXIETY
     Dosage: 225 MG 1X PER 1 DAY ORAL; 225 MG 1X PER 1 DAY ORAL
     Route: 048
     Dates: start: 20050801
  6. EFFEXOR XR [Suspect]
     Indication: DEPRESSION
     Dosage: 225 MG 1X PER 1 DAY ORAL; 225 MG 1X PER 1 DAY ORAL
     Route: 048
     Dates: start: 20050801
  7. LOPRAZOLAM (LOPRAZOLAM) [Concomitant]

REACTIONS (3)
  - DRUG EXPOSURE DURING PREGNANCY [None]
  - DRUG WITHDRAWAL SYNDROME [None]
  - MALAISE [None]
